FAERS Safety Report 8841886 (Version 1)
Quarter: 2012Q4

REPORT INFORMATION
  Report Type: Spontaneous
  Country: US (occurrence: None)
  Receive Date: 20121016
  Receipt Date: 20121016
  Transmission Date: 20130627
  Serious: Yes (Other)
  Sender: FDA-Public Use
  Company Number: None

PATIENT
  Age: 34 Year
  Sex: Female
  Weight: 63.96 kg

DRUGS (1)
  1. SOLU MEDROL [Suspect]
     Indication: IMPINGEMENT SYNDROME SHOULDER

REACTIONS (10)
  - Musculoskeletal stiffness [None]
  - Condition aggravated [None]
  - Post procedural complication [None]
  - Joint range of motion decreased [None]
  - Nausea [None]
  - Fatigue [None]
  - Myalgia [None]
  - Headache [None]
  - Feeling hot [None]
  - Pain [None]
